FAERS Safety Report 26205142 (Version 1)
Quarter: 2025Q4

REPORT INFORMATION
  Report Type: Spontaneous
  Country: EU (occurrence: EU)
  Receive Date: 20251228
  Receipt Date: 20251228
  Transmission Date: 20260117
  Serious: Yes (Death)
  Sender: JOHNSON AND JOHNSON
  Company Number: EU-JNJFOC-20251233189

PATIENT
  Age: 8 Decade
  Sex: Female
  Weight: 53 kg

DRUGS (2)
  1. RYBREVANT [Suspect]
     Active Substance: AMIVANTAMAB-VMJW
     Indication: Non-small cell lung cancer metastatic
  2. RYBREVANT [Suspect]
     Active Substance: AMIVANTAMAB-VMJW
     Dosage: DATE OF LAST INFUSION: 21-NOV-2025; INFUSION NO.: 5

REACTIONS (2)
  - Adverse drug reaction [Fatal]
  - Off label use [Unknown]
